FAERS Safety Report 9476138 (Version 2)
Quarter: 2013Q3

REPORT INFORMATION
  Report Type: Report from Study
  Country: HU (occurrence: HU)
  Receive Date: 20130826
  Receipt Date: 20130923
  Transmission Date: 20140515
  Serious: Yes (Hospitalization)
  Sender: FDA-Public Use
  Company Number: PHHO2013HU010944

PATIENT
  Sex: 0

DRUGS (10)
  1. BLINDED NO TREATMENT RECEIVED [Suspect]
     Indication: CHRONIC OBSTRUCTIVE PULMONARY DISEASE
     Dosage: CODE NOT BROKEN
     Dates: start: 20130717
  2. BLINDED NVA237 [Suspect]
     Indication: CHRONIC OBSTRUCTIVE PULMONARY DISEASE
     Dosage: CODE NOT BROKEN
     Dates: start: 20130717
  3. BLINDED PLACEBO [Suspect]
     Indication: CHRONIC OBSTRUCTIVE PULMONARY DISEASE
     Dosage: CODE NOT BROKEN
     Dates: start: 20130717
  4. BLINDED QAB149 [Suspect]
     Indication: CHRONIC OBSTRUCTIVE PULMONARY DISEASE
     Dosage: CODE NOT BROKEN
     Dates: start: 20130717
  5. BLINDED QVA149 [Suspect]
     Indication: CHRONIC OBSTRUCTIVE PULMONARY DISEASE
     Dosage: CODE NOT BROKEN
     Dates: start: 20130717
  6. VASILIP [Concomitant]
     Indication: ANGINA PECTORIS
     Dosage: 40 MG, QD
     Route: 048
     Dates: start: 200611
  7. ASA [Concomitant]
     Indication: CEREBRAL INFARCTION
     Dosage: 100 MG, QD
     Route: 048
     Dates: start: 200611, end: 20130820
  8. RENITEC [Concomitant]
     Indication: HYPERTENSION
     Dosage: 10 MG, BID
     Route: 048
     Dates: start: 200611
  9. QUAMATEL [Concomitant]
     Indication: GASTRITIS
     Dosage: 20 MG, BID
     Route: 048
     Dates: start: 200611, end: 20130820
  10. CORVATON FORTE [Concomitant]
     Indication: ANGINA PECTORIS
     Dosage: 4 MG, BID
     Route: 048
     Dates: start: 200611

REACTIONS (1)
  - Haemoptysis [Recovered/Resolved]
